FAERS Safety Report 9969178 (Version 2)
Quarter: 2014Q2

REPORT INFORMATION
  Report Type: Spontaneous
  Country: AU (occurrence: AU)
  Receive Date: 20140306
  Receipt Date: 20140408
  Transmission Date: 20141212
  Serious: Yes (Other)
  Sender: FDA-Public Use
  Company Number: AU-ROCHE-1355291

PATIENT
  Age: 2 Year
  Sex: Male

DRUGS (1)
  1. CELLCEPT [Suspect]
     Indication: PRODUCT USED FOR UNKNOWN INDICATION
     Route: 065
     Dates: start: 20140124

REACTIONS (4)
  - Hyperkalaemia [Unknown]
  - Hyponatraemia [Unknown]
  - Blood bicarbonate decreased [Unknown]
  - Hypophosphataemia [Unknown]
